FAERS Safety Report 5157068-7 (Version None)
Quarter: 2006Q4

REPORT INFORMATION
  Report Type: 
  Country: None (occurrence: None)
  Receive Date: 20061127
  Receipt Date: 20061113
  Transmission Date: 20070319
  Serious: Yes (Other)
  Sender: FDA-Public Use
  Company Number: FR-JNJFOC-20061103735

PATIENT
  Age: 60 Year
  Sex: Female

DRUGS (1)
  1. EPITOMAX [Suspect]
     Indication: EPILEPSY
     Route: 048

REACTIONS (4)
  - CATARACT [None]
  - VISUAL ACUITY REDUCED [None]
  - VISUAL DISTURBANCE [None]
  - VISUAL FIELD DEFECT [None]
